FAERS Safety Report 22977382 (Version 7)
Quarter: 2023Q4

REPORT INFORMATION
  Report Type: Report from Study
  Country: FR (occurrence: FR)
  Receive Date: 20230925
  Receipt Date: 20231101
  Transmission Date: 20240109
  Serious: Yes (Death, Life-Threatening, Hospitalization, Other)
  Sender: FDA-Public Use
  Company Number: FR-KOREA IPSEN Pharma-2023-22115

PATIENT

DRUGS (3)
  1. CABOZANTINIB [Suspect]
     Active Substance: CABOZANTINIB
     Indication: Malignant fibrous histiocytoma
     Dosage: 40 MG EVERY CYCLE C2
     Route: 048
     Dates: start: 20230818, end: 20230917
  2. CABOZANTINIB [Suspect]
     Active Substance: CABOZANTINIB
     Indication: Off label use
  3. PEMBROLIZUMAB [Suspect]
     Active Substance: PEMBROLIZUMAB
     Indication: Malignant fibrous histiocytoma
     Dosage: 200 MILLIGRAM EVERY CYCLE(S)
     Route: 042
     Dates: start: 20230818, end: 20230818

REACTIONS (2)
  - Pneumothorax [Fatal]
  - Off label use [Unknown]

NARRATIVE: CASE EVENT DATE: 20230818
